FAERS Safety Report 9219469 (Version 1)
Quarter: 2013Q2

REPORT INFORMATION
  Report Type: Report from Study
  Country: US (occurrence: US)
  Receive Date: 20130409
  Receipt Date: 20130409
  Transmission Date: 20140414
  Serious: Yes (Hospitalization)
  Sender: FDA-Public Use
  Company Number: US-BRISTOL-MYERS SQUIBB COMPANY-17170010

PATIENT
  Age: 63 Year
  Sex: Male
  Weight: 61.5 kg

DRUGS (7)
  1. CETUXIMAB [Suspect]
     Indication: HEAD AND NECK CANCER
     Dosage: 400MG/M2:31-31JUL12?250MG/M2:21AUG2012?LAST DOSE ON 13NOV12,HELD;20NOV2012.RESTARTED ON 27NOV2012
     Route: 042
     Dates: start: 20120731
  2. CISPLATIN [Suspect]
     Indication: HEAD AND NECK CANCER
     Dosage: LAST DOSE ON 13NOV12
     Route: 042
     Dates: start: 20120731
  3. 5-FLUOROURACIL [Suspect]
     Indication: HEAD AND NECK CANCER
     Dosage: LAST DOSE ON 13NOV2012
     Route: 042
     Dates: start: 20120731
  4. ZOFRAN [Concomitant]
     Indication: NAUSEA
     Dates: start: 20120731
  5. OXYCODONE [Concomitant]
     Indication: PAIN
     Dates: start: 20120731
  6. REGLAN [Concomitant]
     Indication: NAUSEA
     Dates: start: 20120731
  7. OMEPRAZOLE [Concomitant]
     Indication: GASTROOESOPHAGEAL REFLUX DISEASE
     Dates: start: 20120731

REACTIONS (3)
  - Dehydration [Recovered/Resolved]
  - Vomiting [Recovered/Resolved]
  - Fluid intake reduced [Recovered/Resolved]
